FAERS Safety Report 9511096 (Version 1)
Quarter: 2013Q1

REPORT INFORMATION
  Report Type: Spontaneous
  Country: US (occurrence: None)
  Receive Date: 20130305
  Receipt Date: 20130305
  Transmission Date: 20140127
  Serious: Yes (Other)
  Sender: FDA-Public Use
  Company Number: 163-21880-12071565

PATIENT
  Age: 77 Year
  Sex: Male
  Weight: 81.19 kg

DRUGS (16)
  1. REVLIMID (LENALIDOMIDE) (25 MILLIGRAM, CAPSULES) [Suspect]
     Indication: PLASMA CELL MYELOMA
     Dosage: 25 MG, 1 IN 1 D, PO
     Route: 048
     Dates: start: 20101007
  2. PROCRIT [Concomitant]
  3. ASPIRIN (ACETYLSALICYLIC ACID) (UNKNOWN) (ACETYLSALICYLIC ACID) [Concomitant]
  4. BACTRIM DS (BACTRIM) (UNKNOWN) [Concomitant]
  5. DEXAMETHASONE (DEXAMETHASONE) (UNKNOWN) [Concomitant]
  6. CALCIUM (CALCIUM) (UNKNOWN) [Concomitant]
  7. VELCADE [Concomitant]
  8. BIAXIN (CLARITHROMYCIN) (UNKNOWN) [Concomitant]
  9. CIPROFLOXACIN (CIPROFLOXACIN) (EYE DROPS) [Concomitant]
  10. FERROUS GLUCONATE (FERROUS GLUCONATE) (UNKNOWN) [Concomitant]
  11. SIMVASTATIN [Concomitant]
  12. POTASSIUM CHLORIDE (POTASSIUM CHLORIDE) (UNKNOWN) [Concomitant]
  13. VITAMIN D (ERGOCALCIFEROL) (UNKNOWN) [Concomitant]
  14. LISINOPRIL HCTZ (ZESTORECTIC) (UNKNOWN) [Concomitant]
  15. TOBRADEX (TOBRADEX) (UNKNOWN) [Concomitant]
  16. ZOMETA (ZOLEDRONIC ACID) (UNKNOWN) [Concomitant]

REACTIONS (5)
  - Platelet count decreased [None]
  - White blood cell count decreased [None]
  - Conjunctivitis [None]
  - Rash [None]
  - Neutropenia [None]
